FAERS Safety Report 18221889 (Version 2)
Quarter: 2020Q4

REPORT INFORMATION
  Report Type: Spontaneous
  Country: US (occurrence: US)
  Receive Date: 20200902
  Receipt Date: 20201015
  Transmission Date: 20210113
  Serious: No
  Sender: FDA-Public Use
  Company Number: US-MYLANLABS-2020M1075186

PATIENT
  Sex: Female
  Weight: 85 kg

DRUGS (1)
  1. WIXELA INHUB [Suspect]
     Active Substance: FLUTICASONE PROPIONATE\SALMETEROL XINAFOATE
     Indication: ASTHMA
     Dosage: 250/50 MICROGRAM, BID (ONE PUFF AT 3:00 AM AND ONE PUFF AT 3:00 PM)
     Route: 055
     Dates: start: 20190312

REACTIONS (3)
  - Device difficult to use [Not Recovered/Not Resolved]
  - Device issue [Not Recovered/Not Resolved]
  - Product quality issue [Unknown]
